FAERS Safety Report 9179073 (Version 1)
Quarter: 2012Q4

REPORT INFORMATION
  Report Type: 
  Country: US (occurrence: US)
  Receive Date: 20121029
  Receipt Date: 20121029
  Transmission Date: 20130627
  Serious: Yes (Other)
  Sender: FDA-Public Use
  Company Number: US-AMGEN-USASP2012052567

PATIENT
  Sex: Male
  Weight: 67.12 kg

DRUGS (3)
  1. ENBREL [Suspect]
     Indication: PRODUCT USED FOR UNKNOWN INDICATION
     Dosage: 25 mg, 2 times/wk
     Route: 058
  2. SIMVASTATIN [Concomitant]
     Dosage: 10 mg, UNK
  3. MULTI-VIT [Concomitant]
     Dosage: UNK

REACTIONS (1)
  - Basal cell carcinoma [Unknown]
